FAERS Safety Report 8396690-1 (Version None)
Quarter: 2012Q2

REPORT INFORMATION
  Report Type: 
  Country: None (occurrence: None)
  Receive Date: 20120530
  Receipt Date: 20110704
  Transmission Date: 20120825
  Serious: Yes (Other)
  Sender: FDA-Public Use
  Company Number: DE-ABBOTT-11P-062-0837727-00

PATIENT
  Sex: Female
  Weight: 56 kg

DRUGS (8)
  1. HUMIRA [Suspect]
     Route: 058
     Dates: start: 20110201, end: 20110505
  2. OMEPRAZOLE [Concomitant]
     Indication: PRODUCT USED FOR UNKNOWN INDICATION
     Dosage: 40 MG, BID
  3. CORTISONE ACETATE [Concomitant]
     Indication: CROHN'S DISEASE
     Dosage: 20 MG, DAILY
  4. PANTOPRAZOLE [Concomitant]
     Indication: PRODUCT USED FOR UNKNOWN INDICATION
  5. HUMIRA [Suspect]
     Indication: CROHN'S DISEASE
     Dosage: (80 MG ONCE)
     Route: 058
     Dates: start: 20110209, end: 20110209
  6. PREDNISONE TAB [Concomitant]
     Indication: CROHN'S DISEASE
  7. MESALAMINE [Concomitant]
     Indication: CROHN'S DISEASE
     Dosage: 1000 MG, TID
  8. FERROUS SULFATE TAB [Concomitant]
     Indication: PRODUCT USED FOR UNKNOWN INDICATION
     Dosage: 1 CAP, OD

REACTIONS (4)
  - RESPIRATORY FAILURE [None]
  - INTERSTITIAL LUNG DISEASE [None]
  - BRONCHOSPASM [None]
  - COUGH [None]
